FAERS Safety Report 4859859-6 (Version None)
Quarter: 2005Q4

REPORT INFORMATION
  Report Type: 
  Country: None (occurrence: None)
  Receive Date: 20051219
  Receipt Date: 20051212
  Transmission Date: 20060501
  Serious: Yes (Hospitalization)
  Sender: FDA-Public Use
  Company Number: JP-JNJFOC-20051202249

PATIENT
  Age: 81 Year
  Sex: Female

DRUGS (16)
  1. TAVANIC [Suspect]
     Route: 048
     Dates: start: 20041127, end: 20041207
  2. ENOXAPARIN SODIUM [Suspect]
     Route: 058
     Dates: start: 20041201, end: 20050110
  3. UNACID [Suspect]
     Route: 048
     Dates: start: 20041127, end: 20041207
  4. UNACID [Suspect]
     Route: 048
     Dates: start: 20041127, end: 20041207
  5. L-THYROXIN [Concomitant]
     Indication: HYPOTHYROIDISM
     Route: 048
  6. POTASSIUM CHLORIDE [Concomitant]
     Route: 048
     Dates: start: 20041201, end: 20050107
  7. TOREM [Concomitant]
     Route: 048
     Dates: start: 20041201
  8. ASPIRIN [Concomitant]
     Route: 048
     Dates: start: 20041201
  9. LANITOP [Concomitant]
     Route: 048
     Dates: start: 20041201
  10. CARBIMAZOL [Concomitant]
     Indication: HYPERTHYROIDISM
     Route: 048
  11. ISOPTIN [Concomitant]
     Indication: TACHYCARDIA
     Route: 065
     Dates: start: 20041128
  12. PANTOZOL [Concomitant]
     Indication: GASTROINTESTINAL DISORDER THERAPY
     Dates: start: 20041128
  13. OXIS [Concomitant]
     Route: 055
     Dates: start: 20041125
  14. SPIRIVA [Concomitant]
     Route: 055
     Dates: start: 20041129
  15. BETAMANN [Concomitant]
     Indication: GLAUCOMA
     Route: 047
     Dates: start: 20041201
  16. PERENTEROL [Concomitant]
     Indication: GASTROENTERITIS
     Route: 048
     Dates: start: 20041213, end: 20050107

REACTIONS (1)
  - GASTROENTERITIS CLOSTRIDIAL [None]
